FAERS Safety Report 8886049 (Version 3)
Quarter: 2013Q2

REPORT INFORMATION
  Report Type: Spontaneous
  Country: US (occurrence: US)
  Receive Date: 20121105
  Receipt Date: 20130604
  Transmission Date: 20140414
  Serious: Yes (Hospitalization, Disabling, Other)
  Sender: FDA-Public Use
  Company Number: US-009507513-1210USA014649

PATIENT
  Sex: Female
  Weight: 73.47 kg

DRUGS (10)
  1. FOSAMAX [Suspect]
     Indication: OSTEOPENIA
     Dosage: 70 MG, UNK
     Route: 048
     Dates: start: 200205, end: 200501
  2. BONIVA [Suspect]
     Indication: OSTEOPENIA
     Dosage: 150 MG, UNK
     Route: 048
     Dates: start: 200505, end: 200903
  3. VITAMIN B COMPLEX [Concomitant]
     Dosage: UNK DF, QD
     Dates: start: 1992
  4. PRILOSEC [Concomitant]
     Dosage: UNK
     Dates: start: 200101
  5. ALPRAZOLAM [Concomitant]
     Indication: ANXIETY
     Dosage: UNK
     Dates: start: 199505
  6. EFFEXOR XR [Concomitant]
     Indication: DEPRESSION
     Dosage: 150 MG, QD
     Route: 048
     Dates: start: 200509
  7. EFFEXOR XR [Concomitant]
     Indication: PANIC ATTACK
  8. EFFEXOR XR [Concomitant]
     Indication: ANXIETY
  9. SERZONE [Concomitant]
     Indication: DEPRESSION
     Dosage: UNK
     Dates: start: 199604, end: 200411
  10. OMEPRAZOLE [Concomitant]
     Dosage: 20 MG, QD
     Route: 048
     Dates: start: 200101

REACTIONS (32)
  - Open reduction of fracture [Not Recovered/Not Resolved]
  - Bone graft [Not Recovered/Not Resolved]
  - Impaired healing [Unknown]
  - Removal of internal fixation [Unknown]
  - Internal fixation of fracture [Unknown]
  - Bone graft [Unknown]
  - Stress fracture [Not Recovered/Not Resolved]
  - Femur fracture [Not Recovered/Not Resolved]
  - Osteoporosis [Not Recovered/Not Resolved]
  - Low turnover osteopathy [Not Recovered/Not Resolved]
  - Peroneal nerve palsy [Unknown]
  - Renal failure [Unknown]
  - Femur fracture [Unknown]
  - Femur fracture [Not Recovered/Not Resolved]
  - Procedural haemorrhage [Unknown]
  - Haematocrit decreased [Unknown]
  - Incisional drainage [Unknown]
  - Infusion site extravasation [Unknown]
  - Adverse event [Unknown]
  - Urinary tract infection [Unknown]
  - Urinary incontinence [Unknown]
  - Tooth infection [Unknown]
  - Dental caries [Unknown]
  - Device breakage [Unknown]
  - Palpitations [Unknown]
  - Cough [Recovering/Resolving]
  - Urinary tract infection [Unknown]
  - Urinary tract infection [Unknown]
  - Carpal tunnel syndrome [Unknown]
  - Platelet count decreased [Unknown]
  - Constipation [Unknown]
  - Back pain [Unknown]
